FAERS Safety Report 24540500 (Version 1)
Quarter: 2024Q4

REPORT INFORMATION
  Report Type: Spontaneous
  Country: US (occurrence: US)
  Receive Date: 20241023
  Receipt Date: 20241023
  Transmission Date: 20250115
  Serious: Yes (Death, Life-Threatening, Hospitalization)
  Sender: AMGEN
  Company Number: US-AMGEN-USASP2024209045

PATIENT
  Age: 48 Year
  Sex: Female

DRUGS (6)
  1. RITUXIMAB [Suspect]
     Active Substance: RITUXIMAB
     Indication: Castleman^s disease
     Dosage: UNK
     Route: 065
  2. PREDNISONE [Suspect]
     Active Substance: PREDNISONE
     Indication: Toxic epidermal necrolysis
     Dosage: 60 MILLIGRAM, QD
     Route: 065
  3. PREDNISONE [Suspect]
     Active Substance: PREDNISONE
     Dosage: UNK (RAPID TAPER)
     Route: 065
  4. INFLIXIMAB [Suspect]
     Active Substance: INFLIXIMAB
     Indication: Toxic epidermal necrolysis
     Dosage: UNK (FIRST DOSE)
     Route: 065
  5. INFLIXIMAB [Suspect]
     Active Substance: INFLIXIMAB
     Dosage: UNK (SECOND DOSE)
     Route: 065
  6. SILTUXIMAB [Concomitant]
     Active Substance: SILTUXIMAB
     Indication: Castleman^s disease

REACTIONS (6)
  - Death [Fatal]
  - Respiratory failure [Unknown]
  - Toxic epidermal necrolysis [Unknown]
  - COVID-19 [Unknown]
  - Loss of therapeutic response [Unknown]
  - Off label use [Unknown]
